FAERS Safety Report 5003375-8 (Version None)
Quarter: 2006Q2

REPORT INFORMATION
  Report Type: 
  Country: None (occurrence: None)
  Receive Date: 20060511
  Receipt Date: 20060503
  Transmission Date: 20061013
  Serious: Yes (Other)
  Sender: FDA-Public Use
  Company Number: 2006059898

PATIENT
  Age: 76 Year
  Sex: Male

DRUGS (4)
  1. DILANTIN [Suspect]
     Indication: ILL-DEFINED DISORDER
  2. AMOXICILLIN TRIHYDRATE [Suspect]
     Indication: ILL-DEFINED DISORDER
  3. INDOMETHACIN [Suspect]
     Indication: ILL-DEFINED DISORDER
  4. RANITIDINE [Concomitant]

REACTIONS (5)
  - CONFUSIONAL STATE [None]
  - HEPATIC FUNCTION ABNORMAL [None]
  - RASH [None]
  - RENAL TUBULAR NECROSIS [None]
  - SOMNOLENCE [None]
